FAERS Safety Report 5494040-1 (Version None)
Quarter: 2007Q4

REPORT INFORMATION
  Report Type: 
  Country: None (occurrence: None)
  Receive Date: 20071022
  Receipt Date: 20071016
  Transmission Date: 20080405
  Serious: Yes (Death, Hospitalization)
  Sender: FDA-Public Use
  Company Number: 163-C5013-07030504

PATIENT
  Age: 57 Year
  Sex: Male
  Weight: 164 kg

DRUGS (1)
  1. CC-5013 (LENALIDOMIDE) (CAPSULES) [Suspect]
     Indication: CHRONIC LYMPHOCYTIC LEUKAEMIA
     Dosage: 25 MG, ONCE DAILY ON DAYS 1-21 OF 28 DAYS, ORAL
     Route: 048
     Dates: start: 20070301, end: 20070307

REACTIONS (12)
  - ACUTE RESPIRATORY FAILURE [None]
  - BLOOD PRESSURE SYSTOLIC INCREASED [None]
  - BUNDLE BRANCH BLOCK RIGHT [None]
  - CARDIAC ARREST [None]
  - CARDIO-RESPIRATORY ARREST [None]
  - HYPOGLYCAEMIA [None]
  - HYPOTENSION [None]
  - MYOCARDIAL ISCHAEMIA [None]
  - PLATELET COUNT DECREASED [None]
  - PNEUMONIA [None]
  - RENAL FAILURE ACUTE [None]
  - TACHYCARDIA [None]
